FAERS Safety Report 19881524 (Version 2)
Quarter: 2021Q4

REPORT INFORMATION
  Report Type: Spontaneous
  Country: US (occurrence: US)
  Receive Date: 20210924
  Receipt Date: 20211029
  Transmission Date: 20220303
  Serious: Yes (Other)
  Sender: FDA-Public Use
  Company Number: US-TEVA-2021-US-1956687

PATIENT
  Age: 79 Year
  Sex: Female
  Weight: 68.04 kg

DRUGS (30)
  1. QVAR REDIHALER [Suspect]
     Active Substance: BECLOMETHASONE DIPROPIONATE
     Indication: Asthma
     Dosage: 2 PUFFS IN THE MORNING AND 2 PUFFS IN THE EVENING
     Route: 065
     Dates: start: 2009
  2. QVAR REDIHALER [Suspect]
     Active Substance: BECLOMETHASONE DIPROPIONATE
     Indication: Sleep apnoea syndrome
     Route: 065
     Dates: start: 20210914
  3. QVAR REDIHALER [Suspect]
     Active Substance: BECLOMETHASONE DIPROPIONATE
  4. QVAR REDIHALER [Suspect]
     Active Substance: BECLOMETHASONE DIPROPIONATE
  5. QVAR [Suspect]
     Active Substance: BECLOMETHASONE DIPROPIONATE
     Indication: Asthma
     Dosage: 2 PUFFS IN THE MORNING AND 2 PUFFS IN THE EVENING
     Route: 065
     Dates: start: 2009
  6. QVAR [Suspect]
     Active Substance: BECLOMETHASONE DIPROPIONATE
     Indication: Sleep apnoea syndrome
     Route: 065
     Dates: start: 20210914
  7. QVAR [Suspect]
     Active Substance: BECLOMETHASONE DIPROPIONATE
  8. QVAR [Suspect]
     Active Substance: BECLOMETHASONE DIPROPIONATE
  9. WIXELA INHUB [Suspect]
     Active Substance: FLUTICASONE PROPIONATE\SALMETEROL XINAFOATE
     Route: 065
     Dates: end: 20210910
  10. SALMETEROL [Suspect]
     Active Substance: SALMETEROL
     Route: 065
  11. ACETAMINOPHEN [Concomitant]
     Active Substance: ACETAMINOPHEN
     Indication: Arthritis
     Dosage: PRN
     Route: 065
  12. BETAMETHASONE [Concomitant]
     Active Substance: BETAMETHASONE
     Indication: Eczema
     Route: 065
  13. ALBUTEROL [Concomitant]
     Active Substance: ALBUTEROL
     Indication: Asthma
     Route: 065
  14. ASPIRIN [Concomitant]
     Active Substance: ASPIRIN
     Indication: Cardiac disorder
     Dosage: 81 MILLIGRAM DAILY;
     Route: 065
  15. COENZYME Q10 [Concomitant]
     Active Substance: DIETARY SUPPLEMENT\UBIDECARENONE
     Route: 065
  16. VITAMIN D3 [Concomitant]
     Active Substance: CHOLECALCIFEROL
     Dosage: 500 MILLIGRAM DAILY;
     Route: 065
  17. DICLOFENAC [Concomitant]
     Active Substance: DICLOFENAC
     Indication: Arthritis
     Dosage: PRN SPARINGLY
     Route: 065
  18. Diltiazem CD12 [Concomitant]
     Indication: Cardiac disorder
     Dosage: 240 MILLIGRAM DAILY;
     Route: 065
  19. FAMOTIDINE [Concomitant]
     Active Substance: FAMOTIDINE
     Indication: Drug hypersensitivity
     Route: 065
  20. FLUTICASONE [Concomitant]
     Active Substance: FLUTICASONE
     Indication: Hypersensitivity
     Route: 065
  21. IRBESARTAN [Concomitant]
     Active Substance: IRBESARTAN
     Indication: Blood pressure abnormal
     Dosage: 150 MILLIGRAM DAILY;
     Route: 065
  22. Larginine [Concomitant]
     Indication: Cardiac disorder
     Route: 065
  23. Thyroid tablet [Concomitant]
     Route: 065
  24. MAGNESIUM GLUCONATE [Concomitant]
     Active Substance: MAGNESIUM GLUCONATE
     Indication: Cardiac disorder
     Dosage: 1000 MILLIGRAM DAILY;
     Route: 065
  25. NITROGLYCERIN [Concomitant]
     Active Substance: NITROGLYCERIN
     Indication: Arteriospasm coronary
     Dosage: 4 MG SUBLINGUAL RESCUE TABLETS AS NEEDED UP TO 5 TABLETS
     Route: 060
  26. Transdermal Nitroglycerin patch [Concomitant]
     Dosage: 6/10 MG PER HOUR FOR 12 HOURS
     Route: 065
  27. OXYGEN [Concomitant]
     Active Substance: OXYGEN
     Dosage: 2L/MINUTE
     Route: 065
  28. ROSUVASTATIN [Concomitant]
     Active Substance: ROSUVASTATIN
     Dosage: DAILY
     Route: 065
  29. SUCRALFATE [Concomitant]
     Active Substance: SUCRALFATE
     Indication: Gastritis
     Dosage: 1 TABLET (2 TO 4 A DAY)
     Route: 065
  30. NyqQuil [Concomitant]
     Indication: Community acquired infection
     Route: 065

REACTIONS (4)
  - Acute kidney injury [Unknown]
  - Urinary incontinence [Not Recovered/Not Resolved]
  - Dyspnoea [Unknown]
  - Product use in unapproved indication [Unknown]
